FAERS Safety Report 17589884 (Version 1)
Quarter: 2020Q1

REPORT INFORMATION
  Report Type: Spontaneous
  Country: US (occurrence: US)
  Receive Date: 20200327
  Receipt Date: 20200327
  Transmission Date: 20200409
  Serious: No
  Sender: FDA-Public Use
  Company Number: US-ALLERGAN-2005481US

PATIENT
  Sex: Male

DRUGS (2)
  1. TIMOLOL. [Concomitant]
     Active Substance: TIMOLOL
  2. LUMIGAN [Suspect]
     Active Substance: BIMATOPROST
     Indication: PRODUCT USED FOR UNKNOWN INDICATION
     Dosage: 2 GTT, QD
     Route: 047
     Dates: start: 20200202

REACTIONS (2)
  - Headache [Not Recovered/Not Resolved]
  - Product physical consistency issue [Unknown]

NARRATIVE: CASE EVENT DATE: 20200202
